FAERS Safety Report 18654054 (Version 1)
Quarter: 2020Q4

REPORT INFORMATION
  Report Type: Spontaneous
  Country: CH (occurrence: CH)
  Receive Date: 20201223
  Receipt Date: 20201223
  Transmission Date: 20210114
  Serious: Yes (Other)
  Sender: FDA-Public Use
  Company Number: CH-TOLMAR, INC.-20CH024372

PATIENT
  Age: 45 Year
  Sex: Male

DRUGS (2)
  1. LEVETIRACETAM. [Suspect]
     Active Substance: LEVETIRACETAM
     Indication: MUSCLE SPASMS
  2. LEVETIRACETAM. [Suspect]
     Active Substance: LEVETIRACETAM
     Indication: MUSCLE CONTRACTIONS INVOLUNTARY
     Route: 065

REACTIONS (2)
  - Fatigue [Recovering/Resolving]
  - Psychotic symptom [Recovered/Resolved]
